FAERS Safety Report 16919821 (Version 2)
Quarter: 2019Q4

REPORT INFORMATION
  Report Type: Spontaneous
  Country: JP (occurrence: JP)
  Receive Date: 20191015
  Receipt Date: 20191024
  Transmission Date: 20200122
  Serious: Yes (Hospitalization)
  Sender: FDA-Public Use
  Company Number: JP-JNJFOC-20191015794

PATIENT
  Sex: Male

DRUGS (2)
  1. DUROTEP [Suspect]
     Active Substance: FENTANYL
     Dosage: 25MCG/HR
     Route: 062
  2. DUROTEP [Suspect]
     Active Substance: FENTANYL
     Indication: PRODUCT USED FOR UNKNOWN INDICATION
     Dosage: 12.5MCG/HR
     Route: 062

REACTIONS (1)
  - Hospitalisation [Unknown]
